FAERS Safety Report 9125029 (Version 1)
Quarter: 2013Q1

REPORT INFORMATION
  Report Type: Spontaneous
  Country: US (occurrence: US)
  Receive Date: 20130117
  Receipt Date: 20130117
  Transmission Date: 20140127
  Serious: Yes (Other)
  Sender: FDA-Public Use
  Company Number: US-009507513-0701USA02491

PATIENT
  Age: 5 Year
  Sex: Female

DRUGS (1)
  1. SINGULAIR [Suspect]
     Indication: HYPERSENSITIVITY
     Dosage: 5 MG, QD
     Route: 048

REACTIONS (17)
  - Abdominal pain upper [Unknown]
  - Abnormal behaviour [Unknown]
  - Abnormal sleep-related event [Unknown]
  - Agitation [Unknown]
  - Anxiety [Unknown]
  - Crying [Unknown]
  - Depressed mood [Unknown]
  - Depression [Unknown]
  - Educational problem [Unknown]
  - Fear [Unknown]
  - Insomnia [Unknown]
  - Personality change [Unknown]
  - Laryngeal pain [Unknown]
  - School refusal [Unknown]
  - Social phobia [Unknown]
  - Throat irritation [Unknown]
  - Condition aggravated [Unknown]
